FAERS Safety Report 19487368 (Version 2)
Quarter: 2025Q3

REPORT INFORMATION
  Report Type: Spontaneous
  Country: CA (occurrence: CA)
  Receive Date: 20210702
  Receipt Date: 20250703
  Transmission Date: 20251020
  Serious: Yes (Hospitalization, Other)
  Sender: SANOFI AVENTIS
  Company Number: CA-SA-SAC20210624000142

PATIENT
  Age: 50 Year
  Sex: Female

DRUGS (2)
  1. IRBESARTAN [Suspect]
     Active Substance: IRBESARTAN
     Route: 065
  2. IRBESARTAN [Suspect]
     Active Substance: IRBESARTAN
     Route: 065

REACTIONS (2)
  - Arthropod bite [Unknown]
  - Angioedema [Unknown]
